FAERS Safety Report 20645061 (Version 2)
Quarter: 2022Q2

REPORT INFORMATION
  Report Type: Spontaneous
  Country: SA (occurrence: SA)
  Receive Date: 20220328
  Receipt Date: 20220427
  Transmission Date: 20220720
  Serious: Yes (Congenital Anomaly, Other)
  Sender: FDA-Public Use
  Company Number: SA-LUPIN PHARMACEUTICALS INC.-2022-04608

PATIENT

DRUGS (3)
  1. PHENYTOIN SODIUM [Suspect]
     Active Substance: PHENYTOIN SODIUM
     Indication: Epilepsy
     Dosage: 400 MG, QD
     Route: 064
  2. FOLIC ACID [Suspect]
     Active Substance: FOLIC ACID
     Indication: Vitamin supplementation
     Dosage: UNK
     Route: 064
  3. VALPROATE [Suspect]
     Active Substance: VALPROIC ACID
     Indication: Epilepsy
     Dosage: 1500 MG, QD
     Route: 064

REACTIONS (2)
  - Strabismus congenital [Unknown]
  - Foetal exposure during pregnancy [Unknown]
